FAERS Safety Report 16470439 (Version 1)
Quarter: 2019Q2

REPORT INFORMATION
  Report Type: Spontaneous
  Country: US (occurrence: US)
  Receive Date: 20190624
  Receipt Date: 20190624
  Transmission Date: 20190711
  Serious: Yes (Other)
  Sender: FDA-Public Use
  Company Number: PHHY2019US140436

PATIENT
  Age: 59 Year
  Sex: Male
  Weight: 78.6 kg

DRUGS (3)
  1. TOBRAMYCIN. [Suspect]
     Active Substance: TOBRAMYCIN
     Indication: STAPHYLOCOCCAL INFECTION
     Dosage: A BATCH OF CALCIUM SULFATE STIMULAN BEADS COMPRISED OF 1 G OF VANCOMYCIN AND 2.4 G OF TOBRAMYCIN WER
     Route: 051
  2. VANCOMYCIN [Suspect]
     Active Substance: VANCOMYCIN
     Indication: STAPHYLOCOCCAL INFECTION
     Dosage: 1.25 G, Q12H
     Route: 051
  3. ADALIMUMAB [Concomitant]
     Active Substance: ADALIMUMAB
     Indication: ANKYLOSING SPONDYLITIS
     Route: 065

REACTIONS (3)
  - Acute kidney injury [Recovered/Resolved]
  - Nephropathy toxic [Recovered/Resolved]
  - Renal tubular necrosis [Recovered/Resolved]
